FAERS Safety Report 6939624-6 (Version None)
Quarter: 2010Q3

REPORT INFORMATION
  Report Type: 
  Country: None (occurrence: None)
  Receive Date: 20100820
  Receipt Date: 20100805
  Transmission Date: 20110219
  Serious: Yes (Life-Threatening, Hospitalization)
  Sender: FDA-Public Use
  Company Number: DSJ-2010-10872

PATIENT
  Age: 62 Year
  Sex: Male

DRUGS (3)
  1. OLMESARTAN MEDOXOMIL [Suspect]
     Indication: HYPERTENSION
     Dosage: 20 MG (20 MG, 1 IN 1 D),PER ORAL
     Route: 048
     Dates: start: 20081120, end: 20100417
  2. VESTURIT (BEZAFIBRATE) (BEZAFIBRATE) [Concomitant]
  3. ALESIOTEC (EPINASTINE HYDROCHLORIDE) (EPINASTINE HYDROCHLORIDE) [Concomitant]

REACTIONS (5)
  - AUTONOMIC NERVOUS SYSTEM IMBALANCE [None]
  - DEHYDRATION [None]
  - HAEMANGIOMA [None]
  - HYPOTENSION [None]
  - SYNCOPE [None]
